FAERS Safety Report 24408916 (Version 2)
Quarter: 2025Q2

REPORT INFORMATION
  Report Type: Report from Study
  Country: US (occurrence: US)
  Receive Date: 20241007
  Receipt Date: 20250514
  Transmission Date: 20250717
  Serious: Yes (Other)
  Sender: ABBVIE
  Company Number: US-ABBVIE-5949695

PATIENT
  Sex: Female

DRUGS (2)
  1. SKYRIZI [Suspect]
     Active Substance: RISANKIZUMAB-RZAA
     Indication: Crohn^s disease
     Route: 058
     Dates: start: 20231227
  2. TRAZODONE [Concomitant]
     Active Substance: TRAZODONE HYDROCHLORIDE
     Indication: Product used for unknown indication

REACTIONS (6)
  - Basal cell carcinoma [Recovered/Resolved]
  - Stomach mass [Recovering/Resolving]
  - Blood prolactin increased [Recovering/Resolving]
  - Cortisol increased [Recovering/Resolving]
  - Amenorrhoea [Unknown]
  - Headache [Recovering/Resolving]
